FAERS Safety Report 4750861-1 (Version None)
Quarter: 2005Q3

REPORT INFORMATION
  Report Type: 
  Country: None (occurrence: None)
  Receive Date: 20050822
  Receipt Date: 20050808
  Transmission Date: 20060218
  Serious: Yes (Other)
  Sender: FDA-Public Use
  Company Number: 2005106310

PATIENT
  Age: 22 Year
  Sex: Male
  Weight: 68.0396 kg

DRUGS (1)
  1. DILANTIN [Suspect]
     Indication: EPILEPSY
     Dosage: 300 MG (1 IN 1 D), ORAL
     Route: 048
     Dates: start: 20030730

REACTIONS (5)
  - ANTICONVULSANT DRUG LEVEL BELOW THERAPEUTIC [None]
  - APHTHOUS STOMATITIS [None]
  - LICHEN PLANUS [None]
  - MOUTH ULCERATION [None]
  - TONGUE ULCERATION [None]
